FAERS Safety Report 19593372 (Version 1)
Quarter: 2021Q3

REPORT INFORMATION
  Report Type: Spontaneous
  Country: US (occurrence: US)
  Receive Date: 20210722
  Receipt Date: 20210722
  Transmission Date: 20211014
  Serious: No
  Sender: FDA-Public Use
  Company Number: US-BAYER-2021-180438

PATIENT
  Age: 71 Year
  Sex: Male

DRUGS (1)
  1. LOTRIMIN ULTRA ANTIFUNGAL [Suspect]
     Active Substance: BUTENAFINE HYDROCHLORIDE
     Indication: PROPHYLAXIS
     Dosage: UNK, BID
     Route: 061
     Dates: start: 20210716, end: 20210717

REACTIONS (3)
  - Peripheral swelling [Recovering/Resolving]
  - Product use in unapproved indication [None]
  - Blister [Recovering/Resolving]

NARRATIVE: CASE EVENT DATE: 20210716
